FAERS Safety Report 12213941 (Version 1)
Quarter: 2016Q1

REPORT INFORMATION
  Report Type: Spontaneous
  Country: US (occurrence: None)
  Receive Date: 20160325
  Receipt Date: 20160325
  Transmission Date: 20160526
  Serious: Yes (Other)
  Sender: FDA-Public Use
  Company Number: None

PATIENT
  Age: 53 Year
  Sex: Male

DRUGS (1)
  1. OTEZLA [Suspect]
     Active Substance: APREMILAST
     Indication: PSORIASIS
     Route: 048
     Dates: start: 201602, end: 201603

REACTIONS (6)
  - Myelodysplastic syndrome [None]
  - Laboratory test abnormal [None]
  - Dizziness [None]
  - Fatigue [None]
  - Nausea [None]
  - Headache [None]
